FAERS Safety Report 8023883-5 (Version None)
Quarter: 2012Q1

REPORT INFORMATION
  Report Type: 
  Country: None (occurrence: None)
  Receive Date: 20120105
  Receipt Date: 20120102
  Transmission Date: 20120608
  Serious: No
  Sender: FDA-Public Use
  Company Number: US-PFIZER INC-2012000528

PATIENT
  Sex: Female
  Weight: 86.168 kg

DRUGS (8)
  1. SYNTHROID [Concomitant]
     Indication: THYROIDECTOMY
     Dosage: 125 UG, DAILY
     Route: 048
  2. CALCIUM [Concomitant]
     Indication: ROUTINE HEALTH MAINTENANCE
     Dosage: UNK
  3. MULTI-VITAMINS [Concomitant]
     Indication: ROUTINE HEALTH MAINTENANCE
     Dosage: UNK
  4. IBUPROFEN (ADVIL) [Suspect]
     Indication: MUSCULOSKELETAL PAIN
     Dosage: 600 MG, 2X/DAY
     Route: 048
     Dates: start: 20111101, end: 20111201
  5. VITAMIN D [Concomitant]
     Indication: ROUTINE HEALTH MAINTENANCE
     Dosage: UNK
  6. ADVIL LIQUI-GELS [Suspect]
     Indication: MUSCULOSKELETAL PAIN
     Dosage: UNK
     Route: 048
     Dates: start: 20111101, end: 20110101
  7. GLUCOSAMINE [Concomitant]
     Indication: ROUTINE HEALTH MAINTENANCE
     Dosage: UNK
  8. FISH OIL [Concomitant]
     Indication: ROUTINE HEALTH MAINTENANCE
     Dosage: UNK

REACTIONS (4)
  - DEPRESSION [None]
  - MYALGIA [None]
  - DRUG INEFFECTIVE [None]
  - APATHY [None]
